FAERS Safety Report 9928437 (Version 1)
Quarter: 2014Q1

REPORT INFORMATION
  Report Type: Spontaneous
  Country: US (occurrence: None)
  Receive Date: 20140226
  Receipt Date: 20140226
  Transmission Date: 20141002
  Serious: Yes (Hospitalization)
  Sender: FDA-Public Use
  Company Number: None

PATIENT
  Age: 48 Year
  Sex: Female

DRUGS (9)
  1. CIMZIA [Suspect]
     Indication: CROHN^S DISEASE
     Route: 058
     Dates: start: 20110126
  2. ACIDOPHILUS [Concomitant]
  3. ATIVAN [Concomitant]
  4. DEPAKOTE [Concomitant]
  5. EFEXO [Concomitant]
  6. LISINOPRIL [Concomitant]
  7. LYRICCA [Concomitant]
  8. TRAZODONE [Concomitant]
  9. VICODIN [Concomitant]

REACTIONS (1)
  - Malignant melanoma [None]
